FAERS Safety Report 23424690 (Version 8)
Quarter: 2025Q4

REPORT INFORMATION
  Report Type: Report from Study
  Country: EU (occurrence: EU)
  Receive Date: 20240120
  Receipt Date: 20251024
  Transmission Date: 20260118
  Serious: Yes (Hospitalization, Other)
  Sender: TAKEDA
  Company Number: EU-TAKEDA-2022TUS030684

PATIENT
  Age: 34 Year
  Sex: Female

DRUGS (8)
  1. TEDUGLUTIDE [Suspect]
     Active Substance: TEDUGLUTIDE
     Indication: Short-bowel syndrome
     Dosage: 0.24 MILLILITER, QD
  2. TEDUGLUTIDE [Suspect]
     Active Substance: TEDUGLUTIDE
     Dosage: 0.24 MILLILITER, QD
     Dates: start: 20210727
  3. TEDUGLUTIDE [Suspect]
     Active Substance: TEDUGLUTIDE
     Dosage: 0.24 MILLILITER, QD
     Dates: start: 20211209
  4. TEDUGLUTIDE [Suspect]
     Active Substance: TEDUGLUTIDE
     Dosage: 0.24 MILLILITER, QD
     Dates: start: 202112
  5. TEDUGLUTIDE [Suspect]
     Active Substance: TEDUGLUTIDE
     Dosage: 0.24 MILLILITER, QD
  6. TEDUGLUTIDE [Suspect]
     Active Substance: TEDUGLUTIDE
     Dosage: 0.24 MILLILITER, QD
  7. TEDUGLUTIDE [Suspect]
     Active Substance: TEDUGLUTIDE
     Dosage: 0.24 MILLILITER, QD
  8. TEDUGLUTIDE [Suspect]
     Active Substance: TEDUGLUTIDE
     Dosage: 0.24 MILLILITER, QD

REACTIONS (23)
  - Dysentery [Recovered/Resolved]
  - Crohn^s disease [Not Recovered/Not Resolved]
  - Haemoglobin decreased [Recovered/Resolved]
  - Sopor [Recovered/Resolved]
  - Diarrhoea [Recovering/Resolving]
  - COVID-19 [Recovering/Resolving]
  - Breast pain [Recovering/Resolving]
  - Back pain [Recovering/Resolving]
  - Dizziness [Recovering/Resolving]
  - Breast discharge [Recovering/Resolving]
  - Vaginal discharge [Recovering/Resolving]
  - Tachycardia [Recovered/Resolved]
  - Pelvic pain [Recovering/Resolving]
  - Abdominal pain lower [Recovering/Resolving]
  - Mucous stools [Not Recovered/Not Resolved]
  - Psoriasis [Recovering/Resolving]
  - Hidradenitis [Recovering/Resolving]
  - Product dose omission issue [Recovered/Resolved]
  - Memory impairment [Recovered/Resolved]
  - Asthenia [Unknown]
  - Pain [Recovered/Resolved]
  - Influenza like illness [Recovered/Resolved]
  - Vomiting [Recovered/Resolved]

NARRATIVE: CASE EVENT DATE: 20220429
